FAERS Safety Report 16600277 (Version 1)
Quarter: 2019Q3

REPORT INFORMATION
  Report Type: Spontaneous
  Country: US (occurrence: US)
  Receive Date: 20190720
  Receipt Date: 20190720
  Transmission Date: 20191004
  Serious: No
  Sender: FDA-Public Use
  Company Number: US-HETERO-HET2019US00950

PATIENT

DRUGS (1)
  1. LEVETIRACETAM. [Suspect]
     Active Substance: LEVETIRACETAM
     Indication: PRODUCT USED FOR UNKNOWN INDICATION
     Dosage: UNK, 2 ML OF 200 MG LIQUID
     Route: 065

REACTIONS (5)
  - Head discomfort [Unknown]
  - Hyperhidrosis [Unknown]
  - Cardiac flutter [Unknown]
  - Lethargy [Unknown]
  - Palpitations [Unknown]
